FAERS Safety Report 8034274-5 (Version None)
Quarter: 2012Q1

REPORT INFORMATION
  Report Type: 
  Country: None (occurrence: None)
  Receive Date: 20120110
  Receipt Date: 20120102
  Transmission Date: 20120608
  Serious: Yes (Other)
  Sender: FDA-Public Use
  Company Number: PHHY2012BR001135

PATIENT
  Age: 44 Year
  Sex: Male

DRUGS (1)
  1. GLEEVEC [Suspect]
     Indication: CHRONIC MYELOID LEUKAEMIA
     Dosage: 400 MG, UNK
     Route: 048

REACTIONS (9)
  - HYPOAESTHESIA [None]
  - ARTHRALGIA [None]
  - BONE PAIN [None]
  - HYPERTENSION [None]
  - OEDEMA PERIPHERAL [None]
  - FATIGUE [None]
  - DIABETES MELLITUS [None]
  - DIARRHOEA [None]
  - MUSCLE SPASMS [None]
